FAERS Safety Report 5819918-8 (Version None)
Quarter: 2008Q3

REPORT INFORMATION
  Report Type: 
  Country: None (occurrence: None)
  Receive Date: 20080717
  Receipt Date: 20080709
  Transmission Date: 20090109
  Serious: Yes (Hospitalization)
  Sender: FDA-Public Use
  Company Number: 163-21880-08060804

PATIENT
  Age: 82 Year
  Sex: Male
  Weight: 62.5964 kg

DRUGS (2)
  1. REVLIMID [Suspect]
     Indication: MULTIPLE MYELOMA
     Dosage: 15 MG, 3X WEEKLY AFTER DIALYSIS, ORAL; 25 MG, 3 WEEKS ON 1 WEEK OFF, ORAL
     Route: 048
     Dates: start: 20080503, end: 20080524
  2. REVLIMID [Suspect]
     Indication: MULTIPLE MYELOMA
     Dosage: 15 MG, 3X WEEKLY AFTER DIALYSIS, ORAL; 25 MG, 3 WEEKS ON 1 WEEK OFF, ORAL
     Route: 048
     Dates: start: 20080614

REACTIONS (6)
  - ANAEMIA [None]
  - ARRHYTHMIA [None]
  - CONDITION AGGRAVATED [None]
  - DIALYSIS [None]
  - HYPERTENSION [None]
  - RENAL FAILURE [None]
